FAERS Safety Report 14592775 (Version 2)
Quarter: 2018Q1

REPORT INFORMATION
  Report Type: Report from Study
  Country: IT (occurrence: IT)
  Receive Date: 20180302
  Receipt Date: 20180319
  Transmission Date: 20180509
  Serious: Yes (Other)
  Sender: FDA-Public Use
  Company Number: IT-INCYTE CORPORATION-2018IN001391

PATIENT

DRUGS (6)
  1. JAKAVI [Suspect]
     Active Substance: RUXOLITINIB
     Dosage: 10 OT, QD
     Route: 065
     Dates: start: 20171103, end: 20171129
  2. JAKAVI [Suspect]
     Active Substance: RUXOLITINIB
     Dosage: 10 OT, QD
     Route: 065
     Dates: start: 20170818, end: 20171023
  3. JAKAVI [Suspect]
     Active Substance: RUXOLITINIB
     Dosage: 10 OT, QD
     Route: 065
     Dates: start: 20171218
  4. JAKAVI [Suspect]
     Active Substance: RUXOLITINIB
     Indication: MYELOFIBROSIS
     Dosage: 10 OT, QD
     Route: 065
     Dates: start: 20170704, end: 20170730
  5. JAKAVI [Suspect]
     Active Substance: RUXOLITINIB
     Dosage: 15 OT, QD
     Route: 065
     Dates: start: 20170731, end: 20170817
  6. JAKAVI [Suspect]
     Active Substance: RUXOLITINIB
     Dosage: 5 OT, QD
     Route: 065
     Dates: start: 20171130, end: 20171217

REACTIONS (18)
  - Eosinophil count increased [Unknown]
  - Varicose vein ruptured [Unknown]
  - Pulmonary hypertension [Unknown]
  - Haemoglobin decreased [Unknown]
  - Neutrophil count increased [Unknown]
  - Hyperhomocysteinaemia [Unknown]
  - Basophil percentage increased [Unknown]
  - Lymphocyte percentage decreased [Unknown]
  - Haematocrit decreased [Unknown]
  - Anaemia [Unknown]
  - White blood cell count increased [Unknown]
  - Basophil count increased [Unknown]
  - Red blood cell count decreased [Unknown]
  - Dyspnoea [Unknown]
  - Neutrophil percentage increased [Unknown]
  - Epistaxis [Unknown]
  - Thrombocytopenia [Not Recovered/Not Resolved]
  - Cough [Unknown]

NARRATIVE: CASE EVENT DATE: 20170828
